FAERS Safety Report 4865215-7 (Version None)
Quarter: 2005Q4

REPORT INFORMATION
  Report Type: 
  Country: None (occurrence: None)
  Receive Date: 20051223
  Receipt Date: 20051217
  Transmission Date: 20060501
  Serious: Yes (Hospitalization, Other)
  Sender: FDA-Public Use
  Company Number: GB-GLAXOSMITHKLINE-B0404082A

PATIENT
  Age: 81 Year
  Sex: Female
  Weight: 46.7 kg

DRUGS (9)
  1. SERETIDE [Suspect]
     Indication: BRONCHIECTASIS
  2. COLOMYCIN [Concomitant]
     Dosage: 2MG PER DAY
  3. VENTOLIN [Concomitant]
     Route: 065
  4. FOSAMAX [Concomitant]
     Route: 065
  5. ESOMEPRAZOLE [Concomitant]
     Dosage: 2MG PER DAY
     Route: 048
  6. ASPIRIN [Concomitant]
     Dosage: 75MG PER DAY
     Route: 065
  7. MADOPAR [Concomitant]
     Route: 065
  8. TAZOCIN [Concomitant]
     Route: 065
     Dates: start: 20051121, end: 20051129
  9. GENTAMICIN [Concomitant]
     Route: 065

REACTIONS (1)
  - ADRENAL SUPPRESSION [None]
